FAERS Safety Report 10412411 (Version 1)
Quarter: 2014Q3

REPORT INFORMATION
  Report Type: Spontaneous
  Country: US (occurrence: None)
  Receive Date: 20140825
  Receipt Date: 20140825
  Transmission Date: 20150326
  Serious: Yes (Other)
  Sender: FDA-Public Use
  Company Number: None

PATIENT
  Age: 45 Year
  Sex: Female
  Weight: 64.41 kg

DRUGS (2)
  1. KLONOPIN [Suspect]
     Active Substance: CLONAZEPAM
     Indication: ANXIETY
     Dosage: 4 TIMES DAILY AS NEEDED
     Route: 048
     Dates: start: 20100101, end: 20140824
  2. KLONOPIN [Suspect]
     Active Substance: CLONAZEPAM
     Indication: POST-TRAUMATIC STRESS DISORDER
     Dosage: 4 TIMES DAILY AS NEEDED
     Route: 048
     Dates: start: 20100101, end: 20140824

REACTIONS (4)
  - Product substitution issue [None]
  - Panic attack [None]
  - Hyperhidrosis [None]
  - Migraine [None]

NARRATIVE: CASE EVENT DATE: 20140701
